FAERS Safety Report 15727638 (Version 1)
Quarter: 2018Q4

REPORT INFORMATION
  Report Type: Spontaneous
  Country: US (occurrence: US)
  Receive Date: 20181217
  Receipt Date: 20181217
  Transmission Date: 20190205
  Serious: No
  Sender: FDA-Public Use
  Company Number: US-NOVEN PHARMACEUTICALS, INC.-US2017001367

PATIENT

DRUGS (5)
  1. ESTRACE [Concomitant]
     Active Substance: ESTRADIOL
  2. ARMOUR THYROID [Concomitant]
     Active Substance: THYROID, PORCINE
  3. MINIVELLE [Suspect]
     Active Substance: ESTRADIOL
     Indication: NIGHT SWEATS
     Dosage: 0.025 MG, UNKNOWN
     Route: 062
  4. MINIVELLE [Suspect]
     Active Substance: ESTRADIOL
     Indication: HORMONE REPLACEMENT THERAPY
  5. MINIVELLE [Suspect]
     Active Substance: ESTRADIOL
     Indication: HOT FLUSH
     Dosage: 0.025 MG, UNK
     Route: 062

REACTIONS (3)
  - No adverse event [Unknown]
  - Product adhesion issue [Not Recovered/Not Resolved]
  - Product dose omission [Recovered/Resolved]
